FAERS Safety Report 12960171 (Version 3)
Quarter: 2017Q1

REPORT INFORMATION
  Report Type: Spontaneous
  Country: PE (occurrence: PE)
  Receive Date: 20161121
  Receipt Date: 20170201
  Transmission Date: 20170428
  Serious: Yes (Other)
  Sender: FDA-Public Use
  Company Number: PE-SA-2016SA207112

PATIENT
  Age: 23 Year
  Sex: Male
  Weight: 51 kg

DRUGS (2)
  1. CEREZYME [Suspect]
     Active Substance: IMIGLUCERASE
     Indication: GAUCHER^S DISEASE TYPE I
     Route: 041
     Dates: start: 201604, end: 201612
  2. CHLORPHENIRAMINE. [Concomitant]
     Active Substance: CHLORPHENIRAMINE
     Dates: start: 201604

REACTIONS (4)
  - Thrombocytopenia [Not Recovered/Not Resolved]
  - Jaundice [Not Recovered/Not Resolved]
  - Megakaryocytes increased [Unknown]
  - Ecchymosis [Not Recovered/Not Resolved]

NARRATIVE: CASE EVENT DATE: 20161107
